FAERS Safety Report 19693654 (Version 2)
Quarter: 2021Q3

REPORT INFORMATION
  Report Type: Spontaneous
  Country: US (occurrence: US)
  Receive Date: 20210812
  Receipt Date: 20210825
  Transmission Date: 20211014
  Serious: Yes (Other)
  Sender: FDA-Public Use
  Company Number: US-ROCHE-2813942

PATIENT
  Age: 74 Year
  Sex: Male

DRUGS (8)
  1. VENCLEXTA [Suspect]
     Active Substance: VENETOCLAX
     Route: 048
     Dates: start: 20210322
  2. DEXAMETHASONE. [Concomitant]
     Active Substance: DEXAMETHASONE
  3. VENCLEXTA [Suspect]
     Active Substance: VENETOCLAX
     Route: 048
     Dates: start: 20210419
  4. COVID?19 VACCINE [Concomitant]
     Route: 030
     Dates: start: 2021, end: 2021
  5. METFORMIN [Concomitant]
     Active Substance: METFORMIN HYDROCHLORIDE
     Indication: DIABETES MELLITUS
  6. VENCLEXTA [Suspect]
     Active Substance: VENETOCLAX
     Route: 048
     Dates: end: 20210621
  7. VENCLEXTA [Suspect]
     Active Substance: VENETOCLAX
     Indication: CHRONIC LYMPHOCYTIC LEUKAEMIA
     Route: 048
     Dates: start: 20210322
  8. GAZYVA [Suspect]
     Active Substance: OBINUTUZUMAB
     Indication: CHRONIC LYMPHOCYTIC LEUKAEMIA
     Dosage: 91 DAYS
     Route: 065
     Dates: end: 20210723

REACTIONS (18)
  - Lethargy [Recovering/Resolving]
  - Fatigue [Unknown]
  - Cough [Not Recovered/Not Resolved]
  - Blood bilirubin increased [Unknown]
  - Oedema peripheral [Unknown]
  - Weight increased [Not Recovered/Not Resolved]
  - Chills [Recovered/Resolved]
  - White blood cell count decreased [Unknown]
  - Red blood cell count decreased [Unknown]
  - Hypersomnia [Not Recovered/Not Resolved]
  - Neutrophil count decreased [Unknown]
  - Feeling cold [Recovered/Resolved]
  - Blood glucose increased [Unknown]
  - Cardiac murmur [Unknown]
  - Drug specific antibody absent [Unknown]
  - Fluid retention [Unknown]
  - Dyspnoea [Not Recovered/Not Resolved]
  - Heart valve incompetence [Unknown]

NARRATIVE: CASE EVENT DATE: 20210322
